FAERS Safety Report 13838863 (Version 1)
Quarter: 2017Q3

REPORT INFORMATION
  Report Type: Spontaneous
  Country: US (occurrence: US)
  Receive Date: 20170805
  Receipt Date: 20170805
  Transmission Date: 20171127
  Serious: Yes (Death)
  Sender: FDA-Public Use
  Company Number: None

PATIENT
  Age: 72 Year
  Sex: Female

DRUGS (19)
  1. LEVABUTEROL [Concomitant]
  2. TYLENOL WITH CODEINE [Concomitant]
     Active Substance: ACETAMINOPHEN\CODEINE PHOSPHATE
  3. PREDNISONE. [Concomitant]
     Active Substance: PREDNISONE
  4. WELLBUTRIN [Concomitant]
     Active Substance: BUPROPION HYDROCHLORIDE
  5. MIRTAZAPINE. [Concomitant]
     Active Substance: MIRTAZAPINE
  6. ECF [Concomitant]
  7. BUDESONIDE. [Concomitant]
     Active Substance: BUDESONIDE
  8. GABAPENTIN. [Concomitant]
     Active Substance: GABAPENTIN
  9. NYSTATIN. [Concomitant]
     Active Substance: NYSTATIN
  10. MEGESTROL AC [Concomitant]
  11. LEVIN [Concomitant]
  12. SYMBICORT [Concomitant]
     Active Substance: BUDESONIDE\FORMOTEROL FUMARATE DIHYDRATE
  13. POTASSIUM [Concomitant]
     Active Substance: POTASSIUM
  14. MUCINEX [Concomitant]
     Active Substance: GUAIFENESIN
  15. MONTELUKAST [Concomitant]
     Active Substance: MONTELUKAST SODIUM
  16. VIRTUSSIN AC [Concomitant]
     Active Substance: CODEINE PHOSPHATE\GUAIFENESIN
  17. ZOFRAN [Concomitant]
     Active Substance: ONDANSETRON HYDROCHLORIDE
  18. AMOXIL [Concomitant]
     Active Substance: AMOXICILLIN
  19. TOBRAMYCIN 300MG/5ML [Suspect]
     Active Substance: TOBRAMYCIN
     Indication: BRONCHIECTASIS
     Dosage: 300MG/5ML 1 BID 20M ORA NEBULIZED
     Route: 048
     Dates: start: 20160420

REACTIONS (1)
  - Death [None]

NARRATIVE: CASE EVENT DATE: 201707
